FAERS Safety Report 5059430-X (Version None)
Quarter: 2006Q3

REPORT INFORMATION
  Report Type: 
  Country: None (occurrence: None)
  Receive Date: 20060718
  Receipt Date: 20060712
  Transmission Date: 20061208
  Serious: Yes (Death)
  Sender: FDA-Public Use
  Company Number: 2006-140766-NL

PATIENT
  Age: 66 Year
  Sex: Female

DRUGS (4)
  1. DANAPAROID SODIUM [Suspect]
     Indication: DISSEMINATED INTRAVASCULAR COAGULATION
     Dosage: 2500 ANTI_XA; INTRAVENOUS (NOS)
     Route: 042
     Dates: start: 20040922, end: 20040925
  2. GLYCEOL [Concomitant]
  3. EDARAVONE [Concomitant]
  4. CEFPIROME SULFATE [Concomitant]

REACTIONS (6)
  - CARDIAC TAMPONADE [None]
  - DYSPNOEA [None]
  - HYPERHIDROSIS [None]
  - MALAISE [None]
  - PERICARDIAL HAEMORRHAGE [None]
  - PLEURAL EFFUSION [None]
